FAERS Safety Report 14172847 (Version 1)
Quarter: 2017Q4

REPORT INFORMATION
  Report Type: Spontaneous
  Country: US (occurrence: None)
  Receive Date: 20171108
  Receipt Date: 20171108
  Transmission Date: 20180321
  Serious: No
  Sender: FDA-Public Use
  Company Number: None

PATIENT
  Age: 14 Year
  Sex: Male

DRUGS (1)
  1. VIGABATRIN POWDER 500MG PAR PHARMACEUTICALS [Suspect]
     Active Substance: VIGABATRIN
     Indication: LENNOX-GASTAUT SYNDROME
     Route: 048
     Dates: start: 20161031

REACTIONS (2)
  - Petit mal epilepsy [None]
  - Suicidal ideation [None]

NARRATIVE: CASE EVENT DATE: 20171107
